FAERS Safety Report 5645579-7 (Version None)
Quarter: 2008Q1

REPORT INFORMATION
  Report Type: 
  Country: None (occurrence: None)
  Receive Date: 20080229
  Receipt Date: 20080228
  Transmission Date: 20080703
  Serious: Yes (Hospitalization)
  Sender: FDA-Public Use
  Company Number: FR-JNJFOC-20080206683

PATIENT
  Age: 30 Year
  Sex: Female

DRUGS (4)
  1. RISPERDAL [Suspect]
     Route: 048
  2. RISPERDAL [Suspect]
     Route: 048
  3. RISPERDAL [Suspect]
     Route: 048
  4. RISPERDAL [Suspect]
     Indication: PSYCHOTIC DISORDER
     Route: 048

REACTIONS (7)
  - COGNITIVE DISORDER [None]
  - DISTURBANCE IN ATTENTION [None]
  - DRUG TOXICITY [None]
  - EXTRAPYRAMIDAL DISORDER [None]
  - INCORRECT DOSE ADMINISTERED [None]
  - SOMNOLENCE [None]
  - VOMITING [None]
